FAERS Safety Report 18305923 (Version 2)
Quarter: 2020Q4

REPORT INFORMATION
  Report Type: Spontaneous
  Country: BG (occurrence: BG)
  Receive Date: 20200924
  Receipt Date: 20201009
  Transmission Date: 20210113
  Serious: Yes (Hospitalization, Other)
  Sender: FDA-Public Use
  Company Number: BG-B.I. PHARMACEUTICALS,INC./RIDGEFIELD-2020-BI-047524

PATIENT
  Sex: Female

DRUGS (1)
  1. MICARDIS PLUS [Suspect]
     Active Substance: HYDROCHLOROTHIAZIDE\TELMISARTAN
     Indication: PRODUCT USED FOR UNKNOWN INDICATION
     Dosage: STRENGTH: 80MG, HCT 12,5MG
     Route: 065

REACTIONS (10)
  - Neonatal respiratory distress syndrome [Unknown]
  - Anaemia [Unknown]
  - Foetal growth restriction [Unknown]
  - Amniotic cavity infection [Unknown]
  - Leukocytosis [Unknown]
  - Underweight [Unknown]
  - Microcephaly [Unknown]
  - Oligohydramnios [Recovered/Resolved with Sequelae]
  - Hyperbilirubinaemia [Unknown]
  - Extremity contracture [Unknown]
